FAERS Safety Report 22858245 (Version 2)
Quarter: 2023Q4

REPORT INFORMATION
  Report Type: Other
  Country: CA (occurrence: CA)
  Receive Date: 20230824
  Receipt Date: 20231205
  Transmission Date: 20240109
  Serious: Yes (Other)
  Sender: FDA-Public Use
  Company Number: CA-INTERCEPT-PM2022000610

PATIENT
  Age: 53 Year
  Sex: Female

DRUGS (5)
  1. OCALIVA [Suspect]
     Active Substance: OBETICHOLIC ACID
     Indication: Primary biliary cholangitis
     Dosage: 5 MG, QD
     Route: 048
     Dates: start: 20200307
  2. OCALIVA [Suspect]
     Active Substance: OBETICHOLIC ACID
     Dosage: 10 MG, QD
     Route: 048
     Dates: end: 202305
  3. URSO [Concomitant]
     Active Substance: URSODIOL
     Dosage: 250 MILLIGRAM, QID
  4. URSO [Concomitant]
     Active Substance: URSODIOL
     Dosage: 250 MG, QID
  5. FERROUS FUMARATE [Concomitant]
     Active Substance: FERROUS FUMARATE
     Dosage: 300 MG, QD
     Route: 048
     Dates: start: 20220721

REACTIONS (21)
  - Gastrointestinal haemorrhage [Unknown]
  - Gastric varices [Unknown]
  - Hepatic fibrosis [Unknown]
  - Portal hypertension [Unknown]
  - Portal hypertensive gastropathy [Unknown]
  - Large intestine polyp [Unknown]
  - Blood potassium increased [Not Recovered/Not Resolved]
  - Gastrointestinal angiodysplasia [Unknown]
  - Haemorrhoids [Unknown]
  - Blood sodium increased [Not Recovered/Not Resolved]
  - Anaemia [Unknown]
  - Anorectal varices [Unknown]
  - Platelet count decreased [Not Recovered/Not Resolved]
  - Large intestinal polypectomy [Unknown]
  - Cholelithiasis [Unknown]
  - Splenomegaly [Unknown]
  - Alanine aminotransferase abnormal [Not Recovered/Not Resolved]
  - Varices oesophageal [Unknown]
  - Blood alkaline phosphatase increased [Not Recovered/Not Resolved]
  - Fatigue [Unknown]
  - Drug ineffective [Not Recovered/Not Resolved]

NARRATIVE: CASE EVENT DATE: 20200901
